FAERS Safety Report 13463515 (Version 2)
Quarter: 2017Q2

REPORT INFORMATION
  Report Type: Spontaneous
  Country: NL (occurrence: NL)
  Receive Date: 20170420
  Receipt Date: 20170519
  Transmission Date: 20170830
  Serious: Yes (Death)
  Sender: FDA-Public Use
  Company Number: NL-INCYTE CORPORATION-2017IN002855

PATIENT

DRUGS (2)
  1. JAKAVI [Suspect]
     Active Substance: RUXOLITINIB
     Indication: MYELOFIBROSIS
     Dosage: UNKNOWN
     Route: 065
  2. JAKAVI [Suspect]
     Active Substance: RUXOLITINIB
     Indication: JANUS KINASE 2 MUTATION

REACTIONS (5)
  - Kaposi^s sarcoma [Fatal]
  - Metastases to lymph nodes [Fatal]
  - Metastases to lung [Fatal]
  - Second primary malignancy [Fatal]
  - Squamous cell carcinoma [Fatal]

NARRATIVE: CASE EVENT DATE: 2013
